FAERS Safety Report 4936345-6 (Version None)
Quarter: 2006Q1

REPORT INFORMATION
  Report Type: 
  Country: None (occurrence: None)
  Receive Date: 20060127
  Receipt Date: 20051206
  Transmission Date: 20060701
  Serious: Yes (Other)
  Sender: FDA-Public Use
  Company Number: 2005165859

PATIENT
  Age: 73 Year
  Sex: Female
  Weight: 40.8237 kg

DRUGS (8)
  1. LYRICA [Suspect]
     Indication: NEURALGIA
     Dosage: 150 MG (75 MG, 2 IN 1 D)
     Dates: start: 20051204
  2. FOSAMAX [Concomitant]
  3. LOVASTATIN [Concomitant]
  4. ATACAND [Concomitant]
  5. ALLERGY MEDICATION (ALLERGY MEDICATION) [Concomitant]
  6. ZYRTEC [Concomitant]
  7. ACIPHEX [Concomitant]
  8. BONINE (MECLIZINE HYDROCHLORIDE) [Concomitant]

REACTIONS (5)
  - ANXIETY [None]
  - DISTURBANCE IN ATTENTION [None]
  - HYPOAESTHESIA [None]
  - NAUSEA [None]
  - SOMNOLENCE [None]
